FAERS Safety Report 5854797-4 (Version None)
Quarter: 2008Q3

REPORT INFORMATION
  Report Type: 
  Country: None (occurrence: None)
  Receive Date: 20080822
  Receipt Date: 20080125
  Transmission Date: 20090109
  Serious: No
  Sender: FDA-Public Use
  Company Number: US-ABBOTT-08P-163-0435244-00

PATIENT
  Sex: Female
  Weight: 79.45 kg

DRUGS (7)
  1. SYNTHROID [Suspect]
     Indication: THYROIDECTOMY
     Route: 048
     Dates: start: 19760101, end: 20030101
  2. SYNTHROID [Suspect]
     Dates: start: 20030101
  3. AMLODIPINE [Concomitant]
     Indication: HYPERTENSION
     Route: 048
  4. PANTOPRAZOLE [Concomitant]
     Indication: GASTROOESOPHAGEAL REFLUX DISEASE
     Route: 048
  5. ATORVASTATIN CALCIUM [Concomitant]
     Indication: BLOOD CHOLESTEROL INCREASED
     Route: 048
  6. SINGULAIR [Concomitant]
     Indication: HYPERSENSITIVITY
     Route: 048
  7. BENADRYL [Concomitant]
     Indication: HYPERSENSITIVITY
     Route: 048

REACTIONS (4)
  - DRY SKIN [None]
  - HAIR TEXTURE ABNORMAL [None]
  - NAIL DISORDER [None]
  - ONYCHOCLASIS [None]
